FAERS Safety Report 9859103 (Version 1)
Quarter: 2014Q1

REPORT INFORMATION
  Report Type: Spontaneous
  Country: CA (occurrence: None)
  Receive Date: 20140129
  Receipt Date: 20140129
  Transmission Date: 20141002
  Serious: Yes (Other)
  Sender: FDA-Public Use
  Company Number: AUR-APL-2014-00671

PATIENT
  Age: 50 Year
  Sex: Female

DRUGS (3)
  1. CITALOPRAM [Suspect]
     Indication: ANXIETY DISORDER
     Dosage: (20 MG, 1 D), UNKNOWN
  2. ESCITALOPRAM (ESCITALOPRAM) [Suspect]
     Indication: ANXIETY DISORDER
     Dosage: (10 MG, 1 D), UNKNOWN
  3. CLOMIPRAMINE (CLOMIPRAMINE) [Suspect]
     Indication: ANXIETY DISORDER
     Dosage: 50 MG (25 MG, 2 IN 1 D), UNKNOWN

REACTIONS (10)
  - Irritability [None]
  - Myalgia [None]
  - Bruxism [None]
  - Initial insomnia [None]
  - Disturbance in attention [None]
  - Fear [None]
  - Palpitations [None]
  - Hyperhidrosis [None]
  - Platelet dysfunction [None]
  - Social phobia [None]
